FAERS Safety Report 4391492-5 (Version None)
Quarter: 2004Q3

REPORT INFORMATION
  Report Type: 
  Country: None (occurrence: None)
  Receive Date: 20040701
  Receipt Date: 20040623
  Transmission Date: 20050211
  Serious: Yes (Hospitalization, Disabling)
  Sender: FDA-Public Use
  Company Number: US-JNJFOC-20040500436

PATIENT
  Age: 40 Year
  Sex: Female
  Weight: 136.0791 kg

DRUGS (10)
  1. LEVAQUIN [Suspect]
     Indication: LYME DISEASE
     Dosage: 500 MG, 1 IN 1 DAY, ORAL
     Route: 048
     Dates: start: 20040310, end: 20040325
  2. CIPROFLOXACIN [Suspect]
     Indication: LYME DISEASE
     Dates: start: 20040202
  3. TRAZADONE (TRAZODONE) [Concomitant]
  4. EFFEXOR [Concomitant]
  5. PLAQUENIL [Concomitant]
  6. GLUCOPHAGE [Concomitant]
  7. MEPRON [Concomitant]
  8. SYNTHROID [Concomitant]
  9. NYSTATIN [Concomitant]
  10. DIFLUCAN [Concomitant]

REACTIONS (12)
  - ABASIA [None]
  - ANXIETY [None]
  - ARTHRALGIA [None]
  - DEPRESSION [None]
  - MUSCULOSKELETAL STIFFNESS [None]
  - NEUROPATHY PERIPHERAL [None]
  - PANIC DISORDER [None]
  - PANIC REACTION [None]
  - SLEEP DISORDER [None]
  - SUICIDAL IDEATION [None]
  - SWELLING [None]
  - TENDON DISORDER [None]
